FAERS Safety Report 8857701 (Version 3)
Quarter: 2013Q2

REPORT INFORMATION
  Report Type: Report from Study
  Country: DK (occurrence: DK)
  Receive Date: 20121024
  Receipt Date: 20130415
  Transmission Date: 20140414
  Serious: Yes (Death, Hospitalization)
  Sender: FDA-Public Use
  Company Number: DK-BAXTER-2012BAX020383

PATIENT
  Age: 69 Year
  Sex: Female
  Weight: 56 kg

DRUGS (17)
  1. SENDOXAN [Suspect]
     Indication: DIFFUSE LARGE B-CELL LYMPHOMA
     Route: 042
  2. SENDOXAN [Suspect]
     Route: 042
     Dates: start: 20110309
  3. METHOTREXATE [Suspect]
     Indication: DIFFUSE LARGE B-CELL LYMPHOMA
     Route: 065
     Dates: start: 20110223
  4. METHOTREXATE [Suspect]
     Route: 065
     Dates: start: 20110228
  5. METHOTREXATE [Suspect]
     Route: 065
     Dates: start: 20110310
  6. METHOTREXATE [Suspect]
     Route: 065
     Dates: start: 20110314
  7. RITUXIMAB [Suspect]
     Indication: DIFFUSE LARGE B-CELL LYMPHOMA
     Route: 042
  8. RITUXIMAB [Suspect]
     Route: 042
     Dates: start: 20110309
  9. RITUXIMAB [Suspect]
     Dosage: MAINTENANCE
     Route: 042
     Dates: start: 20120919
  10. PREDNISONE [Suspect]
     Indication: DIFFUSE LARGE B-CELL LYMPHOMA
     Route: 048
  11. PREDNISONE [Suspect]
     Route: 048
     Dates: start: 20110309
  12. DOXORUBICIN [Suspect]
     Indication: DIFFUSE LARGE B-CELL LYMPHOMA
     Route: 042
  13. DOXORUBICIN [Suspect]
     Route: 042
     Dates: start: 20110309
  14. VINCRISTINE [Suspect]
     Indication: DIFFUSE LARGE B-CELL LYMPHOMA
     Route: 042
  15. VINCRISTINE [Suspect]
     Route: 042
     Dates: start: 20110309
  16. PEGFILGRASTIM [Suspect]
     Indication: DIFFUSE LARGE B-CELL LYMPHOMA
     Route: 065
  17. SULFAMETHOXAZOLE/TRIMETHOPRIM [Concomitant]
     Indication: PRODUCT USED FOR UNKNOWN INDICATION
     Route: 065
     Dates: start: 20110224

REACTIONS (1)
  - Non-Hodgkin^s lymphoma [Fatal]
